FAERS Safety Report 9958242 (Version 1)
Quarter: 2014Q1

REPORT INFORMATION
  Report Type: Report from Study
  Country: US (occurrence: US)
  Receive Date: 20140304
  Receipt Date: 20140304
  Transmission Date: 20141002
  Serious: No
  Sender: FDA-Public Use
  Company Number: US-ABBVIE-13P-163-1095700-00

PATIENT
  Age: 32 Year
  Sex: Female
  Weight: 52.21 kg

DRUGS (2)
  1. HUMIRA [Suspect]
     Indication: CROHN^S DISEASE
     Dates: start: 201101, end: 201212
  2. PREDNISONE [Concomitant]
     Indication: JOINT SWELLING
     Dates: start: 201001

REACTIONS (1)
  - Joint swelling [Recovered/Resolved]
